FAERS Safety Report 13366746 (Version 1)
Quarter: 2017Q1

REPORT INFORMATION
  Report Type: Spontaneous
  Country: IS (occurrence: IS)
  Receive Date: 20170324
  Receipt Date: 20170324
  Transmission Date: 20170429
  Serious: Yes (Hospitalization)
  Sender: FDA-Public Use
  Company Number: IS-TEVA-750958ISR

PATIENT
  Sex: Female

DRUGS (3)
  1. DALACIN 150 MG/ML INJEKTIONSV??TSKA, L??SNING [Suspect]
     Active Substance: CLINDAMYCIN PHOSPHATE
     Indication: BACTERIAL INFECTION
     Dosage: 3 TIMES PER 24-HOURS FOR A MONTH
     Route: 042
     Dates: start: 20151113, end: 20151221
  2. LEVAXIN 0.05MG [Concomitant]
     Dosage: 1 PER DAY FOR MANY YEARS
  3. DOXYLIN 100 MG T??FLUR [Suspect]
     Active Substance: DOXYCYCLINE
     Indication: BACTERIAL INFECTION
     Dosage: 200 MILLIGRAM DAILY; 1 TABLET TWICE PER DAY
     Dates: start: 20151221, end: 20160215

REACTIONS (10)
  - Alopecia [Not Recovered/Not Resolved]
  - Diarrhoea [Not Recovered/Not Resolved]
  - Vomiting [Not Recovered/Not Resolved]
  - Pain [Not Recovered/Not Resolved]
  - Oesophageal injury [Not Recovered/Not Resolved]
  - Weight decreased [Not Recovered/Not Resolved]
  - Tongue coated [Not Recovered/Not Resolved]
  - Gastrointestinal injury [Not Recovered/Not Resolved]
  - Eating disorder [Not Recovered/Not Resolved]
  - Loss of consciousness [Unknown]
